FAERS Safety Report 7351887 (Version 3)
Quarter: 2013Q3

REPORT INFORMATION
  Report Type: Spontaneous
  Country: US (occurrence: US)
  Receive Date: 20100412
  Receipt Date: 20130911
  Transmission Date: 20140515
  Serious: Yes (Hospitalization)
  Sender: FDA-Public Use
  Company Number: US-BAYER-201018521NA

PATIENT
  Age: 36 Year
  Sex: Female
  Weight: 86.17 kg

DRUGS (7)
  1. YAZ [Suspect]
     Indication: CONTRACEPTION
     Dosage: UNK
     Route: 048
     Dates: start: 200602, end: 20080104
  2. YASMIN [Suspect]
     Indication: CONTRACEPTION
     Dosage: UNK
     Route: 048
  3. IBUPROFEN [Concomitant]
     Dosage: 800 MG, UNK
  4. ACETAMINOPHEN + COD. PHOSP. [Concomitant]
     Dosage: UNK
     Dates: start: 20070806
  5. METHERGINE [Concomitant]
     Dosage: 0.2 MG, UNK
     Dates: start: 20070806
  6. AZITHROMYCIN [Concomitant]
     Dosage: 1 G, UNK
     Dates: start: 20070806
  7. FERROUS SULFATE [Concomitant]
     Dosage: 325 MG, UNK
     Dates: start: 20070809

REACTIONS (3)
  - Deep vein thrombosis [Recovered/Resolved]
  - Pulmonary embolism [Recovered/Resolved]
  - Pain [Recovered/Resolved]
